FAERS Safety Report 14999872 (Version 1)
Quarter: 2018Q2

REPORT INFORMATION
  Report Type: Spontaneous
  Country: US (occurrence: US)
  Receive Date: 20180612
  Receipt Date: 20180612
  Transmission Date: 20180711
  Serious: No
  Sender: FDA-Public Use
  Company Number: US-PFIZER INC-2018235402

PATIENT
  Age: 13 Year
  Sex: Female
  Weight: 30.84 kg

DRUGS (2)
  1. QUILLICHEW ER [Suspect]
     Active Substance: METHYLPHENIDATE HYDROCHLORIDE
     Dosage: 30 MG, UNK
  2. QUILLICHEW ER [Suspect]
     Active Substance: METHYLPHENIDATE HYDROCHLORIDE
     Dosage: 40 MG, UNK
     Route: 048
     Dates: start: 20180502, end: 20180601

REACTIONS (3)
  - Ligament sprain [Unknown]
  - Drug effect incomplete [Unknown]
  - Decreased appetite [Unknown]

NARRATIVE: CASE EVENT DATE: 201804
